FAERS Safety Report 9181372 (Version 1)
Quarter: 2013Q1

REPORT INFORMATION
  Report Type: Spontaneous
  Country: JP (occurrence: None)
  Receive Date: 20130320
  Receipt Date: 20130320
  Transmission Date: 20140127
  Serious: Yes (Death, Hospitalization, Disabling, Other)
  Sender: FDA-Public Use
  Company Number: 2000000474-FJ

PATIENT
  Age: 46 Year
  Sex: Male

DRUGS (9)
  1. PROGRAF [Suspect]
     Indication: PROPHYLAXIS AGAINST GRAFT VERSUS HOST DISEASE
     Route: 042
     Dates: start: 199908, end: 199909
  2. PROGRAF [Suspect]
     Indication: PROPHYLAXIS AGAINST GRAFT VERSUS HOST DISEASE
     Route: 042
     Dates: start: 199908, end: 199909
  3. METHYLPREDNISOLONE SODIUM SUCCINATE (METHYLPREDNISOLONE) [Concomitant]
  4. FILGRASTIM (FILGRASTIM) [Concomitant]
  5. BUSULFAN (BUSULFAN) [Concomitant]
  6. CYCLOPHOSPHAMIDE (CYCLOPHOSPHAMIDE) [Concomitant]
  7. METHOTREXATE (METHOTREXATE) [Concomitant]
  8. PREDNISOLONE (PREDNISOLONE) [Concomitant]
  9. CYTARABINE (CYTARABINE) [Concomitant]

REACTIONS (7)
  - Drug ineffective [None]
  - Acute graft versus host disease [None]
  - Sepsis [None]
  - Cytomegalovirus infection [None]
  - Adenovirus infection [None]
  - Cystitis haemorrhagic [None]
  - Encephalopathy [None]
